FAERS Safety Report 5246565-1 (Version None)
Quarter: 2007Q1

REPORT INFORMATION
  Report Type: 
  Country: None (occurrence: None)
  Receive Date: 20070226
  Receipt Date: 20070207
  Transmission Date: 20070707
  Serious: Yes (Other)
  Sender: FDA-Public Use
  Company Number: US-BAYER-200611010BWH

PATIENT
  Age: 68 Year
  Sex: Female
  Weight: 58 kg

DRUGS (26)
  1. NEXAVAR [Suspect]
     Indication: RENAL CELL CARCINOMA STAGE UNSPECIFIED
     Dosage: TOTAL DAILY DOSE: 200 MG  UNIT DOSE: 200 MG
     Route: 048
     Dates: start: 20060720
  2. NEXAVAR [Suspect]
     Dosage: TOTAL DAILY DOSE: 400 MG  UNIT DOSE: 200 MG
     Route: 048
     Dates: start: 20060712, end: 20060720
  3. NEXAVAR [Suspect]
     Dosage: TOTAL DAILY DOSE: 200 MG  UNIT DOSE: 200 MG
     Route: 048
     Dates: start: 20060627, end: 20060711
  4. NEXAVAR [Suspect]
     Dosage: TOTAL DAILY DOSE: 400 MG  UNIT DOSE: 200 MG
     Route: 048
     Dates: start: 20060211, end: 20060619
  5. NEXAVAR [Suspect]
     Dosage: TOTAL DAILY DOSE: 800 MG  UNIT DOSE: 200 MG
     Route: 048
     Dates: start: 20060131, end: 20060210
  6. HYDREA [Concomitant]
     Indication: ESSENTIAL THROMBOCYTHAEMIA
     Dosage: TOTAL DAILY DOSE: 1000 MG  UNIT DOSE: 500 MG
     Dates: start: 20060712
  7. HYDREA [Concomitant]
     Dosage: AS USED: 500 MG  UNIT DOSE: 500 MG
  8. HYDREA [Concomitant]
     Dosage: TOTAL DAILY DOSE: 500 MG  UNIT DOSE: 500 MG
     Dates: end: 20060619
  9. HYDREA [Concomitant]
     Dosage: TOTAL DAILY DOSE: 1000 MG
     Dates: start: 20060125
  10. HYDREA [Concomitant]
     Dosage: TOTAL DAILY DOSE: 1000 MG
     Dates: start: 20061030
  11. HYDREA [Concomitant]
     Dosage: TOTAL DAILY DOSE: 1000 MG
     Dates: start: 20060619
  12. HYDREA [Concomitant]
     Dosage: TOTAL DAILY DOSE: 1000 MG
     Dates: start: 20060425
  13. HYDREA [Concomitant]
     Dosage: TOTAL DAILY DOSE: 1000 MG
     Dates: start: 20060228, end: 20060425
  14. HYDREA [Concomitant]
     Dosage: TOTAL DAILY DOSE: 500 MG
     Dates: start: 20060228, end: 20060425
  15. WELLBUTRIN [Concomitant]
     Dosage: TOTAL DAILY DOSE: 150 MG
  16. ZETIA [Concomitant]
     Route: 048
     Dates: end: 20060712
  17. ASPIRIN [Concomitant]
     Indication: ESSENTIAL THROMBOCYTHAEMIA
     Dosage: TOTAL DAILY DOSE: 81 MG  UNIT DOSE: 81 MG
     Route: 048
  18. CALCIUM [Concomitant]
  19. OXYCODONE HCL [Concomitant]
     Indication: PAIN
  20. OXYCODONE HCL [Concomitant]
  21. ASCORBIC ACID [Concomitant]
  22. ADVIL [Concomitant]
  23. NEURONTIN [Concomitant]
  24. CALCIUM CARBONATE [Concomitant]
  25. PERCOCET [Concomitant]
     Indication: PAIN
  26. CALCIUM WITH VITAMIN D [Concomitant]
     Dosage: TOTAL DAILY DOSE: 1200 MG
     Route: 048

REACTIONS (41)
  - ABDOMINAL PAIN [None]
  - ALOPECIA [None]
  - ANOREXIA [None]
  - ARTHRALGIA [None]
  - ASTHENIA [None]
  - CHILLS [None]
  - DIARRHOEA [None]
  - ERYTHEMA [None]
  - EYE INFLAMMATION [None]
  - FATIGUE [None]
  - HYPOTRICHOSIS [None]
  - INFLUENZA LIKE ILLNESS [None]
  - JOINT CONTRACTURE [None]
  - JOINT SWELLING [None]
  - LIPASE INCREASED [None]
  - LYMPHOEDEMA [None]
  - MALAISE [None]
  - MUSCLE SPASMS [None]
  - MUSCULAR WEAKNESS [None]
  - MYOCARDIAL INFARCTION [None]
  - MYOCARDIAL ISCHAEMIA [None]
  - NAUSEA [None]
  - OEDEMA PERIPHERAL [None]
  - PAIN IN EXTREMITY [None]
  - PALMAR-PLANTAR ERYTHRODYSAESTHESIA SYNDROME [None]
  - PANCREATITIS [None]
  - PANCYTOPENIA [None]
  - PLANTAR FASCIITIS [None]
  - POSTOPERATIVE ABSCESS [None]
  - PYREXIA [None]
  - RASH GENERALISED [None]
  - RHINORRHOEA [None]
  - SKIN EXFOLIATION [None]
  - THROMBOCYTHAEMIA [None]
  - TREMOR [None]
  - URINARY TRACT INFECTION [None]
  - URINE OUTPUT DECREASED [None]
  - UROSEPSIS [None]
  - VISUAL DISTURBANCE [None]
  - VITREOUS FLOATERS [None]
  - VOMITING [None]
